FAERS Safety Report 4876592-5 (Version None)
Quarter: 2006Q1

REPORT INFORMATION
  Report Type: 
  Country: None (occurrence: None)
  Receive Date: 20060110
  Receipt Date: 20060105
  Transmission Date: 20060701
  Serious: Yes (Other)
  Sender: FDA-Public Use
  Company Number: 200610010EU

PATIENT
  Age: 49 Year
  Sex: Female

DRUGS (3)
  1. NICORETTE [Suspect]
     Route: 002
     Dates: start: 19790101
  2. ARTHROTEC [Concomitant]
     Indication: ARTHRITIS
     Route: 048
  3. PARACETAMOL [Concomitant]
     Route: 048

REACTIONS (4)
  - DEPENDENCE [None]
  - DRUG INEFFECTIVE [None]
  - MEDICATION ERROR [None]
  - OVERDOSE [None]
